FAERS Safety Report 5131444-0 (Version None)
Quarter: 2006Q4

REPORT INFORMATION
  Report Type: 
  Country: None (occurrence: None)
  Receive Date: 20061020
  Receipt Date: 20061017
  Transmission Date: 20070319
  Serious: Yes (Hospitalization)
  Sender: FDA-Public Use
  Company Number: AU-BRISTOL-MYERS SQUIBB COMPANY-13545090

PATIENT
  Age: 84 Year
  Sex: Male

DRUGS (12)
  1. IRBESARTAN AND HYDROCHLOROTHIAZIDE [Suspect]
     Route: 048
  2. PLAVIX [Suspect]
     Route: 048
  3. ALLOPURINOL [Suspect]
     Route: 048
  4. LOMOTIL [Suspect]
     Route: 048
  5. PANAMAX [Suspect]
     Route: 048
  6. RISPERDAL [Suspect]
     Route: 048
  7. TEMAZE [Suspect]
     Route: 048
  8. ARICEPT [Suspect]
     Dosage: 08-JAN-2006 TO 07-MAR-2006 DOSAGE WAS 5 MG. DOSE INCREASED TO 10 MG 08-MAR-2006.
     Route: 048
     Dates: start: 20050308, end: 20050329
  9. NEO-CYTAMEN [Concomitant]
  10. ELOCON [Concomitant]
     Route: 061
  11. TOPICAL STEROID CREAM [Concomitant]
     Route: 048
  12. FERROUS SULFATE TAB [Concomitant]

REACTIONS (4)
  - INTESTINAL OBSTRUCTION [None]
  - LETHARGY [None]
  - THERAPY REGIMEN CHANGED [None]
  - VOMITING [None]
